FAERS Safety Report 7771412-3 (Version None)
Quarter: 2011Q3

REPORT INFORMATION
  Report Type: 
  Country: None (occurrence: None)
  Receive Date: 20110922
  Receipt Date: 20110223
  Transmission Date: 20111222
  Serious: No
  Sender: FDA-Public Use
  Company Number: US-ASTRAZENECA-2007UW02125

PATIENT
  Age: 579 Month
  Sex: Male
  Weight: 70.3 kg

DRUGS (11)
  1. SEROQUEL [Suspect]
     Dosage: 100-200 MG
     Route: 048
     Dates: start: 20051001, end: 20060101
  2. KLONOPIN [Concomitant]
  3. ABILIFY [Concomitant]
     Dates: start: 20040101
  4. CAPTOPRIL [Concomitant]
     Dates: start: 20050805
  5. REMERON [Concomitant]
     Route: 048
     Dates: start: 20040617
  6. ASPIRIN [Concomitant]
     Route: 048
  7. SEROQUEL [Suspect]
     Indication: BIPOLAR DISORDER
     Dosage: 25MG-200MG
     Route: 048
     Dates: start: 20040504
  8. SEROQUEL [Suspect]
     Indication: SLEEP DISORDER
     Dosage: 25MG-200MG
     Route: 048
     Dates: start: 20040504
  9. SEROQUEL [Suspect]
     Dosage: 100-200 MG
     Route: 048
     Dates: start: 20051001, end: 20060101
  10. RISPERDAL [Concomitant]
     Dosage: 3-4 MG
     Dates: start: 20040101
  11. PROTONIX [Concomitant]
     Dates: start: 20040617

REACTIONS (3)
  - TYPE 1 DIABETES MELLITUS [None]
  - TYPE 2 DIABETES MELLITUS [None]
  - MUSCULOSKELETAL CHEST PAIN [None]
